FAERS Safety Report 5916995-0 (Version None)
Quarter: 2008Q4

REPORT INFORMATION
  Report Type: 
  Country: None (occurrence: None)
  Receive Date: 20081014
  Receipt Date: 20081006
  Transmission Date: 20090506
  Serious: Yes (Life-Threatening, Hospitalization)
  Sender: FDA-Public Use
  Company Number: GB-RANBAXY-2008RR-18462

PATIENT
  Age: 60 Year
  Sex: Male

DRUGS (3)
  1. SIMVASTATIN [Suspect]
     Indication: PROPHYLAXIS
     Dosage: 20 MG, UNK
     Route: 048
     Dates: start: 20080219, end: 20080901
  2. LEVOTHYROXINE SODIUM [Concomitant]
  3. METFORMIN HCL [Concomitant]

REACTIONS (7)
  - ABDOMINAL PAIN [None]
  - ACUTE HEPATIC FAILURE [None]
  - DIABETES MELLITUS [None]
  - DUODENAL ULCER PERFORATION [None]
  - HEPATITIS [None]
  - JAUNDICE [None]
  - LIVER FUNCTION TEST ABNORMAL [None]
